FAERS Safety Report 22309908 (Version 1)
Quarter: 2023Q2

REPORT INFORMATION
  Report Type: Spontaneous
  Country: US (occurrence: None)
  Receive Date: 20230510
  Receipt Date: 20230510
  Transmission Date: 20230721
  Serious: No
  Sender: FDA-Public Use
  Company Number: None

PATIENT
  Age: 65 Year

DRUGS (1)
  1. INSULIN DEGLUDEC [Suspect]
     Active Substance: INSULIN DEGLUDEC
     Dosage: 26 UNK AT BEDTIME SUBCUTANEOUS?
     Route: 058
     Dates: start: 20230123, end: 20230503

REACTIONS (4)
  - Palpitations [None]
  - Product substitution issue [None]
  - Tinnitus [None]
  - Paraesthesia [None]

NARRATIVE: CASE EVENT DATE: 20230508
